FAERS Safety Report 12680470 (Version 1)
Quarter: 2016Q3

REPORT INFORMATION
  Report Type: Spontaneous
  Country: CA (occurrence: CA)
  Receive Date: 20160824
  Receipt Date: 20160824
  Transmission Date: 20161109
  Serious: No
  Sender: FDA-Public Use
  Company Number: CA-JNJFOC-20160817682

PATIENT
  Sex: Male

DRUGS (2)
  1. DURAGESIC [Suspect]
     Active Substance: FENTANYL
     Indication: PAIN
     Dosage: 8 PATCHES, OVERNIGHT
     Route: 062
  2. DURAGESIC [Suspect]
     Active Substance: FENTANYL
     Indication: PAIN
     Dosage: (3 OF THE 100 MCG + ONE 25 MCG)
     Route: 062

REACTIONS (3)
  - Accidental overdose [Unknown]
  - Somnolence [Unknown]
  - Wrong technique in product usage process [Unknown]
